FAERS Safety Report 22531201 (Version 1)
Quarter: 2023Q2

REPORT INFORMATION
  Report Type: Spontaneous
  Country: KR (occurrence: KR)
  Receive Date: 20230607
  Receipt Date: 20230607
  Transmission Date: 20230721
  Serious: Yes (Hospitalization, Other)
  Sender: FDA-Public Use
  Company Number: KR-ORGANON-O2305KOR003129

PATIENT
  Age: 63 Year
  Sex: Male
  Weight: 68.3 kg

DRUGS (4)
  1. COZAAR [Suspect]
     Active Substance: LOSARTAN POTASSIUM
     Indication: Essential hypertension
     Dosage: 1 FORMULATION, QD, FILM-COATED TABLET
     Route: 048
     Dates: start: 20171016, end: 20180323
  2. CLOBETASOL PROPIONATE [Concomitant]
     Active Substance: CLOBETASOL PROPIONATE
     Indication: Pruritus
     Dosage: UNK
     Route: 061
     Dates: start: 20171016, end: 20171021
  3. LEVOFLOXACIN HEMIHYDRATE [Concomitant]
     Active Substance: LEVOFLOXACIN
     Indication: Prophylaxis
     Dosage: 2 FORMULATION, QD
     Route: 048
     Dates: start: 20171016, end: 20180218
  4. AMLODIPINE BESYLATE [Concomitant]
     Active Substance: AMLODIPINE BESYLATE
     Indication: Essential hypertension
     Dosage: 1 FORMULATION, QD, UNCOATED TABLET
     Route: 048
     Dates: start: 20171016, end: 20180308

REACTIONS (10)
  - Insomnia [Recovered/Resolved]
  - Insomnia [Recovered/Resolved]
  - Serum ferritin increased [Not Recovered/Not Resolved]
  - Constipation [Recovered/Resolved]
  - Hypokalaemia [Recovered/Resolved]
  - Hypokalaemia [Recovered/Resolved]
  - Neutropenia [Recovered/Resolved]
  - Electrolyte imbalance [Recovered/Resolved]
  - Dizziness [Recovered/Resolved]
  - Neutropenia [Recovered/Resolved]

NARRATIVE: CASE EVENT DATE: 20171017
